FAERS Safety Report 8442577-5 (Version None)
Quarter: 2012Q2

REPORT INFORMATION
  Report Type: 
  Country: None (occurrence: None)
  Receive Date: 20120615
  Receipt Date: 20120605
  Transmission Date: 20120825
  Serious: No
  Sender: FDA-Public Use
  Company Number: CA-ASTRAZENECA-2012SE37500

PATIENT
  Age: 54 Year
  Sex: Female
  Weight: 89.8 kg

DRUGS (5)
  1. CYTOMEL [Concomitant]
     Indication: AUTOIMMUNE THYROIDITIS
  2. WELLBUTRIN [Concomitant]
     Indication: DEPRESSION
  3. SYNTHROID [Concomitant]
     Indication: AUTOIMMUNE THYROIDITIS
  4. CELEXA [Concomitant]
     Indication: DEPRESSION
  5. SEROQUEL XR [Suspect]
     Indication: SLEEP DISORDER
     Route: 048
     Dates: start: 20120528

REACTIONS (3)
  - FEELING ABNORMAL [None]
  - SOMNOLENCE [None]
  - OFF LABEL USE [None]
